FAERS Safety Report 10873494 (Version 2)
Quarter: 2015Q2

REPORT INFORMATION
  Report Type: Report from Study
  Country: DE (occurrence: DE)
  Receive Date: 20150227
  Receipt Date: 20150415
  Transmission Date: 20150821
  Serious: Yes (Death, Other)
  Sender: FDA-Public Use
  Company Number: DE-ABBVIE-15P-062-1353201-00

PATIENT
  Age: 76 Year
  Sex: Male
  Weight: 76 kg

DRUGS (1)
  1. LUPRON DEPOT [Suspect]
     Active Substance: LEUPROLIDE ACETATE
     Indication: PROSTATE CANCER
     Route: 058
     Dates: start: 20070521

REACTIONS (2)
  - Death [Fatal]
  - Prostate cancer metastatic [Unknown]

NARRATIVE: CASE EVENT DATE: 20140107
